FAERS Safety Report 7043847-8 (Version None)
Quarter: 2010Q4

REPORT INFORMATION
  Report Type: 
  Country: None (occurrence: None)
  Receive Date: 20101012
  Receipt Date: 20101012
  Transmission Date: 20110411
  Serious: Yes (Hospitalization)
  Sender: FDA-Public Use
  Company Number: None

PATIENT
  Age: 48 Year
  Sex: Male
  Weight: 111.1313 kg

DRUGS (1)
  1. COMMIT MINI LOSENGERS 4 MG GLAXO SMITH KLINE [Suspect]
     Indication: SMOKING CESSATION THERAPY
     Dosage: 1 EVEERY FOUR HOURS PO
     Route: 048
     Dates: start: 20100506, end: 20100509

REACTIONS (2)
  - LOSS OF CONSCIOUSNESS [None]
  - ROAD TRAFFIC ACCIDENT [None]
